FAERS Safety Report 12173755 (Version 1)
Quarter: 2016Q1

REPORT INFORMATION
  Report Type: Spontaneous
  Country: US (occurrence: None)
  Receive Date: 20160311
  Receipt Date: 20160311
  Transmission Date: 20160526
  Serious: No
  Sender: FDA-Public Use
  Company Number: None

PATIENT
  Age: 36 Year
  Sex: Female

DRUGS (4)
  1. LO ESTRIN [Concomitant]
  2. FLONASE [Suspect]
     Active Substance: FLUTICASONE PROPIONATE
     Indication: SEASONAL ALLERGY
     Dosage: SPRAY  ONCE DAILY  INHALATION
     Route: 055
  3. DIOVAN [Concomitant]
     Active Substance: VALSARTAN
  4. DAILY MULTVITAMIN [Concomitant]

REACTIONS (1)
  - Conjunctivitis [None]
